FAERS Safety Report 21608182 (Version 2)
Quarter: 2023Q1

REPORT INFORMATION
  Report Type: Spontaneous
  Country: US (occurrence: US)
  Receive Date: 20221117
  Receipt Date: 20230214
  Transmission Date: 20230417
  Serious: No
  Sender: FDA-Public Use
  Company Number: US-GLAUKOS-35599

PATIENT
  Age: 57 Year
  Sex: Male

DRUGS (7)
  1. PHOTREXA [Suspect]
     Active Substance: RIBOFLAVIN 5^-PHOSPHATE SODIUM
     Indication: Keratoconus
     Route: 047
     Dates: start: 20220718, end: 20220718
  2. PHOTREXA VISCOUS [Suspect]
     Active Substance: RIBOFLAVIN 5^-PHOSPHATE SODIUM
     Indication: Keratoconus
     Route: 047
     Dates: start: 20220718, end: 20220718
  3. DEVICE [Suspect]
     Active Substance: DEVICE
     Indication: Keratoconus
     Route: 047
     Dates: start: 20220718, end: 20220718
  4. LOTEMAX SM [Concomitant]
     Active Substance: LOTEPREDNOL ETABONATE
     Indication: Product used for unknown indication
     Dosage: QHS, OS, PRE-OPERATIVE
  5. LOTEMAX SM [Concomitant]
     Active Substance: LOTEPREDNOL ETABONATE
     Dosage: QID, OS, POST-OPERATIVE
  6. RETAINE MGD [Concomitant]
     Active Substance: LIGHT MINERAL OIL\MINERAL OIL
     Indication: Product used for unknown indication
     Dosage: OS, PRE-OPERATIVE
  7. RETAINE MGD [Concomitant]
     Active Substance: LIGHT MINERAL OIL\MINERAL OIL
     Dosage: OS, POST-OPERATIVE

REACTIONS (3)
  - Eye infection [Recovering/Resolving]
  - Corneal infiltrates [Recovering/Resolving]
  - Eye pain [Unknown]

NARRATIVE: CASE EVENT DATE: 20220701
